FAERS Safety Report 6384313-2 (Version None)
Quarter: 2009Q3

REPORT INFORMATION
  Report Type: 
  Country: None (occurrence: None)
  Receive Date: 20090928
  Receipt Date: 20090914
  Transmission Date: 20100115
  Serious: Yes (Hospitalization)
  Sender: FDA-Public Use
  Company Number: 007544

PATIENT
  Sex: Female

DRUGS (2)
  1. PLETAL [Suspect]
     Route: 048
  2. PREGABALIN [Concomitant]

REACTIONS (1)
  - CIRCULATORY COLLAPSE [None]
